FAERS Safety Report 7934747-7 (Version None)
Quarter: 2011Q4

REPORT INFORMATION
  Report Type: 
  Country: None (occurrence: None)
  Receive Date: 20111122
  Receipt Date: 20111107
  Transmission Date: 20120403
  Serious: Yes (Death, Hospitalization)
  Sender: FDA-Public Use
  Company Number: US-WATSON-2011-19266

PATIENT
  Age: 69 Year
  Sex: Female

DRUGS (2)
  1. AMIODARONE HCL [Suspect]
     Indication: ATRIAL FIBRILLATION
     Dosage: 400 MG, TID ORALLY, THEN CHANGED TO IV
     Route: 050
  2. COLCHICINE [Suspect]
     Indication: PERICARDITIS
     Dosage: 0.6 MG, BID X10 DAYS THEN STOPPED
     Route: 048

REACTIONS (12)
  - LEUKOPENIA [None]
  - PERICARDIAL EFFUSION [None]
  - DIARRHOEA [None]
  - MULTI-ORGAN FAILURE [None]
  - DRUG INTERACTION [None]
  - NAUSEA [None]
  - TOXICITY TO VARIOUS AGENTS [None]
  - VOMITING [None]
  - LEUKOCYTOSIS [None]
  - PLEURAL EFFUSION [None]
  - CARDIOGENIC SHOCK [None]
  - CARDIAC ARREST [None]
